FAERS Safety Report 23845524 (Version 1)
Quarter: 2024Q2

REPORT INFORMATION
  Report Type: Report from Study
  Country: US (occurrence: US)
  Receive Date: 20240511
  Receipt Date: 20240511
  Transmission Date: 20240716
  Serious: Yes (Hospitalization, Other)
  Sender: FDA-Public Use
  Company Number: US-ABBVIE-5740112

PATIENT
  Sex: Male
  Weight: 99.79 kg

DRUGS (9)
  1. HUMIRA [Suspect]
     Active Substance: ADALIMUMAB
     Indication: Ankylosing spondylitis
     Dosage: FORM STRENGTH: 40 MILLIGRAM
     Route: 058
     Dates: start: 20211031, end: 2023
  2. HUMIRA [Suspect]
     Active Substance: ADALIMUMAB
     Route: 058
     Dates: end: 202403
  3. HUMIRA [Suspect]
     Active Substance: ADALIMUMAB
     Dosage: FIRST ADMIN DATE 2023
     Route: 058
     Dates: end: 202308
  4. HUMIRA [Suspect]
     Active Substance: ADALIMUMAB
     Dosage: FIRST ADMIN DATE 2023
     Route: 058
     Dates: end: 202310
  5. HUMIRA [Suspect]
     Active Substance: ADALIMUMAB
     Dosage: FIRST ADMIN DATE 2024
     Route: 058
  6. HUMIRA [Suspect]
     Active Substance: ADALIMUMAB
     Dosage: FIRST ADMIN DATE 2023 FORM STRENGTH: 40 MG
     Route: 058
     Dates: end: 2023
  7. ROBAXIN [Concomitant]
     Active Substance: METHOCARBAMOL
     Indication: Product used for unknown indication
  8. FLORINEF ACETATE [Concomitant]
     Active Substance: FLUDROCORTISONE ACETATE
     Indication: Product used for unknown indication
  9. SOMA [Concomitant]
     Active Substance: CARISOPRODOL
     Indication: Product used for unknown indication

REACTIONS (17)
  - Rib fracture [Recovering/Resolving]
  - Ehlers-Danlos syndrome [Not Recovered/Not Resolved]
  - Bone marrow harvest [Recovering/Resolving]
  - Pain [Recovering/Resolving]
  - Bone density abnormal [Recovering/Resolving]
  - Swelling [Recovered/Resolved]
  - Localised infection [Recovered/Resolved]
  - Pain [Recovered/Resolved]
  - Device fastener issue [Recovering/Resolving]
  - Chest injury [Recovering/Resolving]
  - Discomfort [Recovered/Resolved]
  - Swelling [Recovered/Resolved]
  - Swelling [Recovering/Resolving]
  - Sneezing [Recovered/Resolved]
  - Discharge [Recovered/Resolved]
  - Rib fracture [Recovering/Resolving]
  - Discomfort [Recovered/Resolved]

NARRATIVE: CASE EVENT DATE: 20210101
